FAERS Safety Report 17733625 (Version 1)
Quarter: 2020Q2

REPORT INFORMATION
  Report Type: Spontaneous
  Country: US (occurrence: US)
  Receive Date: 20200430
  Receipt Date: 20200430
  Transmission Date: 20200714
  Serious: Yes (Hospitalization)
  Sender: FDA-Public Use
  Company Number: None

PATIENT
  Sex: Male

DRUGS (1)
  1. OCTREOTIDE. [Suspect]
     Active Substance: OCTREOTIDE
     Indication: ANGIODYSPLASIA
     Route: 058
     Dates: start: 20200327

REACTIONS (3)
  - Myocardial infarction [None]
  - Pain in extremity [None]
  - Dyspnoea [None]
